FAERS Safety Report 24167685 (Version 1)
Quarter: 2024Q3

REPORT INFORMATION
  Report Type: Spontaneous
  Country: CN (occurrence: CN)
  Receive Date: 20240802
  Receipt Date: 20240802
  Transmission Date: 20241017
  Serious: Yes (Hospitalization, Disabling, Other)
  Sender: SANOFI AVENTIS
  Company Number: CN-SA-SAC20240801000116

PATIENT
  Age: 59 Year
  Sex: Female
  Weight: 57 kg

DRUGS (2)
  1. OXALIPLATIN [Suspect]
     Active Substance: OXALIPLATIN
     Indication: Rectal cancer
     Dosage: 200 MG, Q3W
     Route: 041
     Dates: start: 20240623, end: 20240623
  2. CAPECITABINE [Suspect]
     Active Substance: CAPECITABINE
     Indication: Rectal cancer
     Dosage: 1.5 G, BID
     Route: 048
     Dates: start: 20240623, end: 20240703

REACTIONS (6)
  - Gastrointestinal disorder [Recovering/Resolving]
  - Discomfort [Recovering/Resolving]
  - Ecchymosis [Recovering/Resolving]
  - Myelosuppression [Recovering/Resolving]
  - Neutrophil count decreased [Recovering/Resolving]
  - Platelet count decreased [Recovering/Resolving]

NARRATIVE: CASE EVENT DATE: 20240601
